FAERS Safety Report 8279107-7 (Version None)
Quarter: 2012Q2

REPORT INFORMATION
  Report Type: 
  Country: None (occurrence: None)
  Receive Date: 20120412
  Receipt Date: 20110310
  Transmission Date: 20120825
  Serious: No
  Sender: FDA-Public Use
  Company Number: US-ASTRAZENECA-2011SE10515

PATIENT
  Age: 48 Year
  Sex: Male

DRUGS (4)
  1. NEXIUM [Suspect]
     Route: 048
  2. PEPCID [Concomitant]
  3. ZANTAC [Concomitant]
  4. INSULIN [Concomitant]

REACTIONS (5)
  - NAUSEA [None]
  - ABDOMINAL PAIN UPPER [None]
  - MALAISE [None]
  - DRUG DOSE OMISSION [None]
  - VOMITING [None]
